FAERS Safety Report 8349085-0 (Version None)
Quarter: 2012Q2

REPORT INFORMATION
  Report Type: 
  Country: None (occurrence: None)
  Receive Date: 20120508
  Receipt Date: 20120425
  Transmission Date: 20120825
  Serious: Yes (Death)
  Sender: FDA-Public Use
  Company Number: CIP-2012-00090

PATIENT
  Sex: 0

DRUGS (2)
  1. GEMCITABINE [Suspect]
     Indication: TRANSITIONAL CELL CARCINOMA
     Dosage: 1000 MG/M2 (DAY 1 AND 8 EVERY 21 DAYS)
  2. CARBOPLATIN [Suspect]
     Indication: TRANSITIONAL CELL CARCINOMA
     Dosage: AUC-4.5 (DAY 1 EVERY 21 DAYS)

REACTIONS (2)
  - PNEUMONIA [None]
  - CREATININE RENAL CLEARANCE DECREASED [None]
